FAERS Safety Report 14977364 (Version 1)
Quarter: 2018Q2

REPORT INFORMATION
  Report Type: Spontaneous
  Country: JP (occurrence: JP)
  Receive Date: 20180606
  Receipt Date: 20180606
  Transmission Date: 20180711
  Serious: Yes (Other)
  Sender: FDA-Public Use
  Company Number: JP-BRISTOL-MYERS SQUIBB COMPANY-BMS-2018-051614

PATIENT
  Age: 8 Decade
  Sex: Male

DRUGS (1)
  1. OPDIVO [Suspect]
     Active Substance: NIVOLUMAB
     Indication: GASTRIC CANCER RECURRENT
     Dosage: 3 MG/KG, UNK
     Route: 041
     Dates: start: 201801, end: 201804

REACTIONS (4)
  - Herpes zoster [Recovering/Resolving]
  - Jaundice [Unknown]
  - Metastases to liver [Unknown]
  - Carcinoembryonic antigen decreased [Unknown]

NARRATIVE: CASE EVENT DATE: 201804
